FAERS Safety Report 8932305 (Version 1)
Quarter: 2012Q4

REPORT INFORMATION
  Report Type: 
  Country: BR (occurrence: BR)
  Receive Date: 20121128
  Receipt Date: 20121128
  Transmission Date: 20130627
  Serious: Yes (Other)
  Sender: FDA-Public Use
  Company Number: BR-PFIZER INC-2012295906

PATIENT
  Age: 35 Year
  Sex: Male

DRUGS (1)
  1. LYRICA [Suspect]
     Indication: PAIN
     Dosage: 75 mg, 2x/day
     Route: 048
     Dates: start: 20121023

REACTIONS (4)
  - Road traffic accident [Unknown]
  - Fall [Unknown]
  - Upper limb fracture [Unknown]
  - Hypoaesthesia [Not Recovered/Not Resolved]
